FAERS Safety Report 7295618-5 (Version None)
Quarter: 2011Q1

REPORT INFORMATION
  Report Type: 
  Country: None (occurrence: None)
  Receive Date: 20110216
  Receipt Date: 20101229
  Transmission Date: 20110831
  Serious: No
  Sender: FDA-Public Use
  Company Number: US-ABBOTT-10P-163-0694199-00

PATIENT
  Sex: Male
  Weight: 97.61 kg

DRUGS (4)
  1. SIMCOR [Suspect]
     Dosage: 1000/40MG
     Dates: start: 20101225
  2. SIMCOR [Suspect]
     Indication: BLOOD CHOLESTEROL
     Dosage: 500/20MG
     Dates: start: 20101127, end: 20101225
  3. LEVAQUIN [Suspect]
     Indication: SINUSITIS
  4. DIOVAN [Concomitant]
     Indication: HYPERTENSION

REACTIONS (4)
  - SINUSITIS [None]
  - PARAESTHESIA [None]
  - FLUSHING [None]
  - PRURITUS [None]
